FAERS Safety Report 9704914 (Version 1)
Quarter: 2013Q4

REPORT INFORMATION
  Report Type: Not Available
  Country: US (occurrence: US)
  Receive Date: 20131122
  Receipt Date: 20131122
  Transmission Date: 20140711
  Serious: No
  Sender: FDA-Public Use
  Company Number: US-AMARIN PHARMA, INC.-2013AMR000080

PATIENT
  Sex: Female

DRUGS (3)
  1. VASCEPA [Suspect]
     Indication: BLOOD CHOLESTEROL
     Route: 065
  2. FISH OIL [Concomitant]
     Indication: PRODUCT USED FOR UNKNOWN INDICATION
     Route: 065
  3. SHINGLES VACCINE [Concomitant]
     Indication: HERPES ZOSTER
     Route: 065

REACTIONS (2)
  - Back pain [Unknown]
  - Oropharyngeal pain [Unknown]
